FAERS Safety Report 12621603 (Version 1)
Quarter: 2016Q3

REPORT INFORMATION
  Report Type: Spontaneous
  Country: IE (occurrence: IE)
  Receive Date: 20160804
  Receipt Date: 20160804
  Transmission Date: 20161109
  Serious: Yes (Hospitalization)
  Sender: FDA-Public Use
  Company Number: IE-IPSEN BIOPHARMACEUTICALS, INC.-2016-06548

PATIENT
  Age: 61 Year
  Sex: Male

DRUGS (2)
  1. LANREOTIDE AUTOGEL [Suspect]
     Active Substance: LANREOTIDE
     Indication: ACROMEGALY
     Dosage: NOT REPORTED
     Route: 065
  2. CABERGOLINE. [Suspect]
     Active Substance: CABERGOLINE
     Indication: ACROMEGALY

REACTIONS (3)
  - Gallbladder perforation [Unknown]
  - Cholecystitis acute [Unknown]
  - Liver abscess [Unknown]
